FAERS Safety Report 5897851-3 (Version None)
Quarter: 2008Q3

REPORT INFORMATION
  Report Type: 
  Country: None (occurrence: None)
  Receive Date: 20080925
  Receipt Date: 20080920
  Transmission Date: 20090109
  Serious: Yes (Hospitalization, Other)
  Sender: FDA-Public Use
  Company Number: US-CELGENEUS-163-21880-08091180

PATIENT
  Age: 50 Year
  Sex: Male
  Weight: 123.3 kg

DRUGS (2)
  1. REVLIMID [Suspect]
     Indication: MULTIPLE MYELOMA
     Route: 048
     Dates: start: 20080904, end: 20080915
  2. CCI-779 [Suspect]
     Indication: MULTIPLE MYELOMA
     Route: 051
     Dates: start: 20080904, end: 20080909

REACTIONS (8)
  - ABDOMINAL DISCOMFORT [None]
  - ANOREXIA [None]
  - CHILLS [None]
  - DRY MOUTH [None]
  - FATIGUE [None]
  - HYPOKALAEMIA [None]
  - HYPOPHOSPHATAEMIA [None]
  - PYREXIA [None]
